FAERS Safety Report 14690580 (Version 1)
Quarter: 2018Q1

REPORT INFORMATION
  Report Type: Spontaneous
  Country: US (occurrence: US)
  Receive Date: 20180328
  Receipt Date: 20180328
  Transmission Date: 20180509
  Serious: No
  Sender: FDA-Public Use
  Company Number: US-TARO-2017TAR00870

PATIENT
  Sex: Male
  Weight: 73.47 kg

DRUGS (4)
  1. FLUOROURACIL TOPICAL CREAM USP 5% [Suspect]
     Active Substance: FLUOROURACIL
     Indication: PRECANCEROUS CELLS PRESENT
     Dosage: UNK, 2X/DAY
     Route: 061
     Dates: start: 2016
  2. LIPITOR [Concomitant]
     Active Substance: ATORVASTATIN CALCIUM
  3. UNSPECIFIED SHOT FOR DIABETES [Concomitant]
  4. UNSPECIFIED VITAMINS [Concomitant]
     Active Substance: VITAMINS

REACTIONS (6)
  - Dizziness [Recovered/Resolved]
  - Pain [Recovered/Resolved]
  - Incorrect drug administration duration [Unknown]
  - Influenza like illness [Recovered/Resolved]
  - Abdominal pain upper [Recovered/Resolved]
  - Expired product administered [Recovered/Resolved]
